FAERS Safety Report 8451355-2 (Version None)
Quarter: 2012Q2

REPORT INFORMATION
  Report Type: 
  Country: None (occurrence: None)
  Receive Date: 20120620
  Receipt Date: 20120514
  Transmission Date: 20120825
  Serious: No
  Sender: FDA-Public Use
  Company Number: US-VERTEX PHARMACEUTICALS INC.-AE-2012-002773

PATIENT
  Sex: Male
  Weight: 92.616 kg

DRUGS (15)
  1. INCIVEK [Suspect]
     Route: 048
     Dates: start: 20120113
  2. PEGINTEFERON [Concomitant]
     Route: 058
     Dates: end: 20110920
  3. PEGINTEFERON [Concomitant]
     Indication: HEPATITIS C
     Route: 058
     Dates: end: 20110901
  4. PEGINTEFERON [Concomitant]
     Route: 058
     Dates: start: 20120311
  5. PHENERGAN [Concomitant]
     Route: 048
     Dates: end: 20120228
  6. NAPROXEN (ALEVE) [Concomitant]
     Route: 048
  7. TRICOR [Concomitant]
     Route: 048
     Dates: end: 20120119
  8. NIASPAN [Concomitant]
     Route: 048
     Dates: end: 20120301
  9. GINSENG [Concomitant]
     Dates: end: 20120228
  10. PEGINTEFERON [Concomitant]
     Route: 058
     Dates: start: 20110113, end: 20120119
  11. SARNA [Concomitant]
  12. IMODIUM A-D [Concomitant]
     Dates: end: 20120228
  13. INCIVEK [Suspect]
     Indication: HEPATITIS C
     Route: 048
     Dates: end: 20111129
  14. RIBAVIRIN [Concomitant]
     Indication: HEPATITIS C
     Route: 048
     Dates: start: 20120113
  15. PHENERGAN [Concomitant]
     Indication: NAUSEA
     Route: 048
     Dates: end: 20120120

REACTIONS (4)
  - WHITE BLOOD CELL COUNT DECREASED [None]
  - BLOOD TRIGLYCERIDES INCREASED [None]
  - DYSPNOEA [None]
  - ANAEMIA [None]
